FAERS Safety Report 5688990-0 (Version None)
Quarter: 2008Q1

REPORT INFORMATION
  Report Type: 
  Country: None (occurrence: None)
  Receive Date: 20080331
  Receipt Date: 20080324
  Transmission Date: 20080703
  Serious: Yes (Other)
  Sender: FDA-Public Use
  Company Number: A0716890A

PATIENT
  Age: 5 Year
  Sex: Female

DRUGS (5)
  1. ALTABAX [Suspect]
     Dosage: 1APP TWICE PER DAY
     Route: 061
     Dates: start: 20080319, end: 20080319
  2. BACTRIM [Concomitant]
  3. SILVADENE [Concomitant]
  4. TYLENOL (CAPLET) [Concomitant]
  5. MOTRIN [Concomitant]

REACTIONS (5)
  - APPLICATION SITE IRRITATION [None]
  - CRYING [None]
  - TREMOR [None]
  - WOUND COMPLICATION [None]
  - WOUND HAEMORRHAGE [None]
